FAERS Safety Report 12683774 (Version 1)
Quarter: 2016Q3

REPORT INFORMATION
  Report Type: Other
  Country: GB (occurrence: GB)
  Receive Date: 20160825
  Receipt Date: 20160825
  Transmission Date: 20161109
  Serious: Yes (Disabling, Other)
  Sender: FDA-Public Use
  Company Number: GB-CELLTRION HEALTHCARE HUNGARY KFT-2016GB007935

PATIENT

DRUGS (3)
  1. LAXIDO                             /06401201/ [Concomitant]
     Active Substance: POLYETHYLENE GLYCOL 3350\POTASSIUM CHLORIDE\SODIUM BICARBONATE\SODIUM CHLORIDE
     Route: 065
  2. COLPERMIN [Concomitant]
     Dosage: UNK
     Route: 065
  3. REMSIMA [Suspect]
     Active Substance: INFLIXIMAB
     Indication: CROHN^S DISEASE
     Dosage: 260 MG, UNK
     Route: 042
     Dates: start: 20160805, end: 20160805

REACTIONS (10)
  - Nausea [Unknown]
  - Heart rate increased [Unknown]
  - Rash erythematous [Recovering/Resolving]
  - Malaise [Unknown]
  - Vision blurred [Recovering/Resolving]
  - Hypoaesthesia [Recovering/Resolving]
  - Dizziness [Unknown]
  - Feeling hot [Unknown]
  - Muscular weakness [Recovering/Resolving]
  - Headache [Recovered/Resolved]

NARRATIVE: CASE EVENT DATE: 20160805
